FAERS Safety Report 24081109 (Version 1)
Quarter: 2024Q3

REPORT INFORMATION
  Report Type: Spontaneous
  Country: CA (occurrence: CA)
  Receive Date: 20240711
  Receipt Date: 20240711
  Transmission Date: 20241017
  Serious: Yes (Life-Threatening, Other)
  Sender: BRISTOL MYERS SQUIBB
  Company Number: CA-BRISTOL-MYERS SQUIBB COMPANY-2024-110199

PATIENT

DRUGS (4)
  1. PACLITAXEL [Suspect]
     Active Substance: PACLITAXEL
     Indication: Product used for unknown indication
  2. KEYTRUDA [Concomitant]
     Active Substance: PEMBROLIZUMAB
     Indication: Product used for unknown indication
     Dosage: NOT SPECIFIED
  3. CARBOPLATIN [Concomitant]
     Active Substance: CARBOPLATIN
     Indication: Product used for unknown indication
     Dosage: SOLUTION INTRAVENOUS
     Route: 042
  4. PACLITAXEL [Concomitant]
     Active Substance: PACLITAXEL
     Indication: Product used for unknown indication
     Dosage: LIQUID INTRAVENOUS
     Route: 042

REACTIONS (5)
  - Blood pressure decreased [Unknown]
  - Chest discomfort [Unknown]
  - Feeling cold [Unknown]
  - Unresponsive to stimuli [Unknown]
  - Adverse event [Unknown]
